FAERS Safety Report 8486624 (Version 10)
Quarter: 2014Q2

REPORT INFORMATION
  Report Type: Report from Study
  Country: DE (occurrence: DE)
  Receive Date: 20120402
  Receipt Date: 20140411
  Transmission Date: 20141212
  Serious: Yes (Hospitalization, Other)
  Sender: FDA-Public Use
  Company Number: DE-UCBSA-054035

PATIENT
  Sex: Female
  Weight: 83 kg

DRUGS (10)
  1. CERTOLIZUMAB PEGOL [Suspect]
     Indication: RHEUMATOID ARTHRITIS
     Route: 058
     Dates: start: 20101005, end: 20111219
  2. METEX [Suspect]
     Indication: RHEUMATOID ARTHRITIS
     Route: 058
     Dates: start: 20090713
  3. METEX [Suspect]
     Indication: RHEUMATOID ARTHRITIS
     Dosage: 50
  4. PREDNISOLONE [Concomitant]
     Indication: RHEUMATOID ARTHRITIS
     Dosage: 5-10 MG
     Route: 048
     Dates: start: 20090713
  5. FALITHROM [Concomitant]
     Indication: THROMBOSIS
     Route: 048
     Dates: start: 20111003
  6. ARCOXIA [Concomitant]
     Indication: RHEUMATOID ARTHRITIS
     Route: 048
     Dates: start: 20091005
  7. AMLODIPINE [Concomitant]
     Indication: HYPERTENSION
     Route: 048
  8. AMLODIPINE [Concomitant]
     Indication: HYPERTENSION
     Dosage: 5
  9. RAMICARD [Concomitant]
     Indication: HYPERTENSION
     Route: 048
  10. DREISAFOL [Concomitant]
     Indication: RHEUMATOID ARTHRITIS
     Dates: start: 20091005

REACTIONS (4)
  - Arthritis bacterial [Recovered/Resolved]
  - Cystitis [Recovered/Resolved]
  - Thrombosis [Recovered/Resolved]
  - Syncope [Recovered/Resolved]
